FAERS Safety Report 6899019-0 (Version None)
Quarter: 2010Q3

REPORT INFORMATION
  Report Type: 
  Country: None (occurrence: None)
  Receive Date: 20100802
  Receipt Date: 20071211
  Transmission Date: 20110219
  Serious: Yes (Other)
  Sender: FDA-Public Use
  Company Number: US-PFIZER INC-2007104958

PATIENT
  Sex: Female

DRUGS (7)
  1. LYRICA [Suspect]
     Dates: start: 20071101
  2. PROVIGIL [Concomitant]
  3. VYTORIN [Concomitant]
  4. MONTELUKAST [Concomitant]
  5. ADVAIR DISKUS 100/50 [Concomitant]
  6. ACETYLSALICYLIC ACID SRT [Concomitant]
  7. FLEXERIL [Concomitant]

REACTIONS (1)
  - THROMBOCYTOPENIA [None]
